FAERS Safety Report 8594814-4 (Version None)
Quarter: 2012Q3

REPORT INFORMATION
  Report Type: 
  Country: None (occurrence: None)
  Receive Date: 20120801
  Receipt Date: 20120716
  Transmission Date: 20120928
  Serious: Yes (Other)
  Sender: FDA-Public Use
  Company Number: 2012000021

PATIENT
  Age: 64 Year
  Sex: Female

DRUGS (3)
  1. ABRAXANE [Suspect]
     Indication: BREAST CANCER METASTATIC
     Dates: end: 20111117
  2. ACEON [Suspect]
     Indication: EJECTION FRACTION DECREASED
     Dosage: 2 MG, QD, ORAL
     Route: 048
     Dates: start: 20111026, end: 20111117
  3. HERCEPTIN [Suspect]
     Indication: BREAST CANCER METASTATIC
     Dosage: INTRAVENOUS
     Route: 042

REACTIONS (2)
  - IDIOPATHIC THROMBOCYTOPENIC PURPURA [None]
  - EJECTION FRACTION DECREASED [None]
